FAERS Safety Report 7492555-8 (Version None)
Quarter: 2011Q2

REPORT INFORMATION
  Report Type: 
  Country: None (occurrence: None)
  Receive Date: 20110519
  Receipt Date: 20110420
  Transmission Date: 20111010
  Serious: No
  Sender: FDA-Public Use
  Company Number: US-BAYER-2011-035469

PATIENT
  Age: 64 Year
  Sex: Female

DRUGS (6)
  1. LOVASTATIN [Concomitant]
  2. CARVEDILOL [Concomitant]
  3. PLAVIX [Concomitant]
  4. ALEVE (CAPLET) [Suspect]
     Indication: ARTHRITIS
     Dosage: 1 DF, BID
     Route: 048
     Dates: start: 20110418
  5. METFORMIN HCL [Concomitant]
  6. LIPITOR [Concomitant]

REACTIONS (1)
  - PRURITUS GENERALISED [None]
